FAERS Safety Report 20091522 (Version 1)
Quarter: 2021Q4

REPORT INFORMATION
  Report Type: Spontaneous
  Country: JP (occurrence: JP)
  Receive Date: 20211119
  Receipt Date: 20211119
  Transmission Date: 20220303
  Serious: Yes (Life-Threatening, Other)
  Sender: FDA-Public Use
  Company Number: JP-SA-2021SA384233

PATIENT

DRUGS (2)
  1. DOCETAXEL [Suspect]
     Active Substance: DOCETAXEL
     Indication: Oropharyngeal cancer
     Dosage: 60 MG/M2, Q4W
     Route: 013
  2. NEDAPLATIN [Suspect]
     Active Substance: NEDAPLATIN
     Indication: Oropharyngeal cancer
     Dosage: 80 MG/M2, Q4W
     Route: 013

REACTIONS (1)
  - Laryngeal oedema [Unknown]
